FAERS Safety Report 8035647-7 (Version None)
Quarter: 2012Q1

REPORT INFORMATION
  Report Type: 
  Country: None (occurrence: None)
  Receive Date: 20120111
  Receipt Date: 20120102
  Transmission Date: 20120608
  Serious: Yes (Other)
  Sender: FDA-Public Use
  Company Number: ES-JNJFOC-20110106941

PATIENT
  Age: 41 Year
  Sex: Male

DRUGS (3)
  1. AZATHIOPRINE [Suspect]
     Indication: CROHN'S DISEASE
     Dosage: SUBTHERAPEUTIC DOSE, TREATED FOR 5 MONTHS
  2. REMICADE [Suspect]
     Indication: CROHN'S DISEASE
     Dosage: TREATED FOR 5 MONTHS
     Route: 042
     Dates: start: 20100101
  3. MESALAMINE [Suspect]
     Indication: CROHN'S DISEASE
     Dosage: SUBTHERAPEUTIC DOSE

REACTIONS (1)
  - ADENOCARCINOMA [None]
